FAERS Safety Report 12707039 (Version 1)
Quarter: 2016Q3

REPORT INFORMATION
  Report Type: Spontaneous
  Country: US (occurrence: US)
  Receive Date: 20160901
  Receipt Date: 20160901
  Transmission Date: 20161109
  Serious: No
  Sender: FDA-Public Use
  Company Number: US-MYLANLABS-2016M1028580

PATIENT
  Age: 35 Year
  Sex: Male
  Weight: 95.24 kg

DRUGS (3)
  1. MODAFINIL TABLETS, USP [Suspect]
     Active Substance: MODAFINIL
     Indication: FATIGUE
     Dosage: 300 MG, QD AND 200MG TO 400MG PRN
     Route: 048
     Dates: start: 201604, end: 201605
  2. MODAFINIL TABLETS, USP [Suspect]
     Active Substance: MODAFINIL
     Indication: SLEEP APNOEA SYNDROME
     Dosage: 300 MG, QD AND 200MG TO 400MG PRN
     Route: 048
     Dates: start: 201605, end: 201606
  3. CLONAZEPAM. [Concomitant]
     Active Substance: CLONAZEPAM
     Dosage: UNK
     Dates: start: 2014, end: 201605

REACTIONS (3)
  - Muscle spasms [Not Recovered/Not Resolved]
  - Musculoskeletal stiffness [Not Recovered/Not Resolved]
  - Crepitations [Not Recovered/Not Resolved]

NARRATIVE: CASE EVENT DATE: 201605
